FAERS Safety Report 5405699-9 (Version None)
Quarter: 2007Q3

REPORT INFORMATION
  Report Type: 
  Country: None (occurrence: None)
  Receive Date: 20070801
  Receipt Date: 20070523
  Transmission Date: 20080115
  Serious: Yes (Hospitalization)
  Sender: FDA-Public Use
  Company Number: 2007000954

PATIENT
  Sex: Male

DRUGS (1)
  1. TARCEVA [Suspect]
     Indication: NON-SMALL CELL LUNG CANCER
     Dosage: ORAL
     Route: 048
     Dates: start: 20070201

REACTIONS (5)
  - CATARACT OPERATION [None]
  - CERVICAL VERTEBRAL FRACTURE [None]
  - FALL [None]
  - IMPAIRED HEALING [None]
  - SYNCOPE [None]
